FAERS Safety Report 7342703-5 (Version None)
Quarter: 2011Q1

REPORT INFORMATION
  Report Type: 
  Country: None (occurrence: None)
  Receive Date: 20110310
  Receipt Date: 20110307
  Transmission Date: 20110831
  Serious: Yes (Other)
  Sender: FDA-Public Use
  Company Number: DE-PFIZER INC-2011049118

PATIENT
  Age: 70 Year
  Sex: Male

DRUGS (1)
  1. LYRICA [Suspect]
     Indication: PAIN
     Dosage: 150 MG, UNK

REACTIONS (3)
  - MUSCLE ATROPHY [None]
  - DISCOMFORT [None]
  - NEUROPATHY PERIPHERAL [None]
